FAERS Safety Report 12419692 (Version 9)
Quarter: 2017Q1

REPORT INFORMATION
  Report Type: Spontaneous
  Country: CA (occurrence: CA)
  Receive Date: 20160531
  Receipt Date: 20170308
  Transmission Date: 20170428
  Serious: Yes (Hospitalization, Other)
  Sender: FDA-Public Use
  Company Number: CA-GLAXOSMITHKLINE-A1063636A

PATIENT
  Age: 52 Year
  Sex: Female
  Weight: 110 kg

DRUGS (14)
  1. BENLYSTA [Suspect]
     Active Substance: BELIMUMAB
     Dosage: 1000 MG, CYC
     Route: 042
  2. BENLYSTA [Suspect]
     Active Substance: BELIMUMAB
     Dosage: 970MGUNK
     Route: 042
  3. TYLENOL [Concomitant]
     Active Substance: ACETAMINOPHEN
     Indication: PRODUCT USED FOR UNKNOWN INDICATION
     Route: 048
  4. BENLYSTA [Suspect]
     Active Substance: BELIMUMAB
     Dosage: 1180 MG, UNK
  5. CHLOROQUINE. [Concomitant]
     Active Substance: CHLOROQUINE
     Indication: PRODUCT USED FOR UNKNOWN INDICATION
     Dosage: 250 MG, U
     Route: 048
  6. BENLYSTA [Suspect]
     Active Substance: BELIMUMAB
     Dosage: 1000 MG, UNK
     Route: 042
  7. BENLYSTA [Suspect]
     Active Substance: BELIMUMAB
     Dosage: 1000 MG, UNK
  8. BENLYSTA [Suspect]
     Active Substance: BELIMUMAB
     Dosage: 1000 MG, CYC
     Route: 042
  9. INFLUENZA SHOT [Concomitant]
     Active Substance: INFLUENZA VIRUS VACCINE
     Indication: PROPHYLAXIS
     Dosage: UNK
  10. BENLYSTA [Suspect]
     Active Substance: BELIMUMAB
     Dosage: 1000 MG, UNK
     Route: 042
  11. PREDNISONE. [Concomitant]
     Active Substance: PREDNISONE
     Indication: PRODUCT USED FOR UNKNOWN INDICATION
     Dosage: 30 MG, U
     Route: 048
  12. LEVAQUIN [Concomitant]
     Active Substance: LEVOFLOXACIN
     Indication: PRODUCT USED FOR UNKNOWN INDICATION
     Dosage: 500 MG, 1D
     Dates: start: 20170128
  13. BENLYSTA [Suspect]
     Active Substance: BELIMUMAB
     Indication: SYSTEMIC LUPUS ERYTHEMATOSUS
     Dosage: 1000 MG, EVERY 4 WEEKS X 50, 2, 4 WEEKS AND THEN EVERY 4 WEEKS
     Route: 042
     Dates: start: 20131022
  14. BENLYSTA [Suspect]
     Active Substance: BELIMUMAB
     Dosage: UNK

REACTIONS (16)
  - Gastroenteritis [Unknown]
  - Urinary tract infection [Recovering/Resolving]
  - Benign oesophageal neoplasm [Unknown]
  - Cellulitis [Unknown]
  - Infection [Unknown]
  - Oral infection [Unknown]
  - Wound infection [Recovered/Resolved]
  - Hand fracture [Unknown]
  - Sinusitis [Recovering/Resolving]
  - Pyrexia [Unknown]
  - Device related infection [Unknown]
  - Fall [Unknown]
  - Pneumonia [Recovered/Resolved]
  - Nasal operation [Recovered/Resolved]
  - Hernia [Unknown]
  - Bronchitis [Unknown]

NARRATIVE: CASE EVENT DATE: 20140218
